FAERS Safety Report 5157485-5 (Version None)
Quarter: 2006Q4

REPORT INFORMATION
  Report Type: 
  Country: None (occurrence: None)
  Receive Date: 20061127
  Receipt Date: 20061121
  Transmission Date: 20070319
  Serious: Yes (Life-Threatening, Disabling)
  Sender: FDA-Public Use
  Company Number: BR-GLAXOSMITHKLINE-A0628503A

PATIENT
  Age: 45 Year
  Sex: Female
  Weight: 58 kg

DRUGS (2)
  1. CLAVULIN [Suspect]
     Indication: URINARY TRACT INFECTION
     Dosage: 875MG TWICE PER DAY
     Route: 048
     Dates: start: 20061115
  2. ATENOLOL [Concomitant]
     Dates: start: 19860101

REACTIONS (9)
  - ANXIETY [None]
  - BURNING SENSATION [None]
  - DEPRESSION [None]
  - EAR INFECTION [None]
  - HEADACHE [None]
  - MALAISE [None]
  - RETCHING [None]
  - SYNCOPE [None]
  - WEIGHT DECREASED [None]
